FAERS Safety Report 6682417-8 (Version None)
Quarter: 2010Q2

REPORT INFORMATION
  Report Type: 
  Country: None (occurrence: None)
  Receive Date: 20100414
  Receipt Date: 20100414
  Transmission Date: 20101027
  Serious: No
  Sender: FDA-Public Use
  Company Number: None

PATIENT
  Sex: Male
  Weight: 26 kg

DRUGS (9)
  1. AZITHROMYCIN [Suspect]
     Indication: CYSTIC FIBROSIS
     Dosage: 250 MG 3 TIMES WEEKLY ORAL
     Route: 048
     Dates: start: 20091207, end: 20100309
  2. FLONASE [Concomitant]
  3. HYPERTONIC SALINE NEBS [Concomitant]
  4. ADVAIR DISKUS 100/50 [Concomitant]
  5. ALBUTEROL [Concomitant]
  6. VITAMIN D3 [Concomitant]
  7. PULMOZYME NEBS [Concomitant]
  8. ULTRASE MT 12 PANCREATIC ENZYMES [Concomitant]
  9. VITAMAX MULTIVITAMIN [Concomitant]

REACTIONS (1)
  - PARAESTHESIA [None]
